FAERS Safety Report 13820048 (Version 1)
Quarter: 2017Q3

REPORT INFORMATION
  Report Type: Spontaneous
  Country: US (occurrence: US)
  Receive Date: 20170801
  Receipt Date: 20170801
  Transmission Date: 20171127
  Serious: No
  Sender: FDA-Public Use
  Company Number: US-GLENMARK PHARMACEUTICALS-2016GMK024889

PATIENT

DRUGS (3)
  1. MUPIROCIN. [Suspect]
     Active Substance: MUPIROCIN
     Dosage: UNK
  2. MUPIROCIN. [Suspect]
     Active Substance: MUPIROCIN
     Indication: PROPHYLAXIS
     Dosage: UNK, BID TO EACH NOSTRIL WITH QTIP
     Route: 045
     Dates: start: 20161102, end: 20161107
  3. VENLAFAXINE [Concomitant]
     Active Substance: VENLAFAXINE HYDROCHLORIDE
     Indication: PRODUCT USED FOR UNKNOWN INDICATION
     Dosage: UNK
     Route: 065

REACTIONS (3)
  - Product use in unapproved indication [Unknown]
  - Drug administered at inappropriate site [Not Recovered/Not Resolved]
  - Nausea [Recovered/Resolved]

NARRATIVE: CASE EVENT DATE: 20161102
